FAERS Safety Report 5368955-9 (Version None)
Quarter: 2007Q2

REPORT INFORMATION
  Report Type: 
  Country: None (occurrence: None)
  Receive Date: 20070625
  Receipt Date: 20061122
  Transmission Date: 20071010
  Serious: No
  Sender: FDA-Public Use
  Company Number: US-ASTRAZENECA-2006UW26029

PATIENT
  Age: 71 Year
  Sex: Female
  Weight: 71.2 kg

DRUGS (9)
  1. CRESTOR [Suspect]
     Indication: BLOOD CHOLESTEROL INCREASED
     Route: 048
     Dates: start: 20061101
  2. MIRAPEX [Concomitant]
  3. QUININE SULFATE [Concomitant]
  4. FLUDROCORTISONE ACETATE [Concomitant]
  5. CAR8-LEVO [Concomitant]
  6. PAROXETINE HCL [Concomitant]
  7. ASPIRIN [Concomitant]
  8. MULTIVITAMIN [Concomitant]
  9. CALCIUM CHLORIDE [Concomitant]

REACTIONS (3)
  - DIZZINESS [None]
  - SWELLING FACE [None]
  - VISUAL DISTURBANCE [None]
